FAERS Safety Report 21223895 (Version 2)
Quarter: 2022Q4

REPORT INFORMATION
  Report Type: Spontaneous
  Country: CA (occurrence: CA)
  Receive Date: 20220817
  Receipt Date: 20221107
  Transmission Date: 20230113
  Serious: Yes (Life-Threatening, Hospitalization, Other)
  Sender: FDA-Public Use
  Company Number: CA-BAXTER-2022BAX017300

PATIENT
  Age: 51 Year
  Sex: Male

DRUGS (30)
  1. NOREPINEPHRINE BITARTRATE [Suspect]
     Active Substance: NOREPINEPHRINE BITARTRATE
     Indication: Overdose
     Dosage: DOSAGE FORM: NOT SPECIFIED
     Route: 065
  2. DEXTROSE MONOHYDRATE\SODIUM CHLORIDE [Suspect]
     Active Substance: DEXTROSE MONOHYDRATE\SODIUM CHLORIDE
     Indication: Overdose
     Dosage: DEXTROSE 5% IN 0.9% SODIUM CHLORIDE, SOLUTION INTRAVENOUS
     Route: 065
  3. DEXTROSE MONOHYDRATE\SODIUM CHLORIDE [Suspect]
     Active Substance: DEXTROSE MONOHYDRATE\SODIUM CHLORIDE
     Dosage: DEXTROSE IN SODIUM CHLORIDE
     Route: 065
  4. POTASSIUM CHLORIDE [Suspect]
     Active Substance: POTASSIUM CHLORIDE
     Indication: Overdose
     Dosage: DOSAGE FORM: NOT SPECIFIED
     Route: 065
  5. ACTIVATED CHARCOAL [Suspect]
     Active Substance: ACTIVATED CHARCOAL
     Indication: Overdose
     Route: 065
  6. VERAPAMIL HYDROCHLORIDE [Suspect]
     Active Substance: VERAPAMIL HYDROCHLORIDE
     Indication: Product used for unknown indication
     Dosage: 19.2 GRAM, DOSAGE FORM: NOT SPECIFIED
     Route: 048
  7. ATROPINE [Suspect]
     Active Substance: ATROPINE
     Indication: Overdose
     Route: 065
  8. ATROPINE [Suspect]
     Active Substance: ATROPINE
     Indication: Product used for unknown indication
  9. CALCIUM CARBONATE [Suspect]
     Active Substance: CALCIUM CARBONATE
     Indication: Overdose
     Dosage: DOSAGE FORM: NOT SPECIFIED
     Route: 065
  10. DIPHENHYDRAMINE [Suspect]
     Active Substance: DIPHENHYDRAMINE
     Indication: Overdose
     Dosage: 200 MG
     Route: 048
  11. GLUCAGON [Suspect]
     Active Substance: GLUCAGON
     Indication: Overdose
     Dosage: 5 MILLIGRAM
     Route: 065
  12. GLUTAMIC ACID [Suspect]
     Active Substance: GLUTAMIC ACID
     Indication: Overdose
     Dosage: UNK
     Route: 042
  13. HISTIDINE [Suspect]
     Active Substance: HISTIDINE
     Indication: Overdose
     Route: 065
  14. INSULIN NOS [Suspect]
     Active Substance: INSULIN NOS
     Indication: Overdose
     Dosage: GLOBULES ORAL, 60 IU (INTERNATIONAL UNIT)
     Route: 065
  15. ASPARTIC ACID [Suspect]
     Active Substance: ASPARTIC ACID
     Indication: Overdose
     Route: 065
  16. LYSINE [Suspect]
     Active Substance: LYSINE
     Indication: Overdose
     Dosage: DOSAGE FORM: NOT SPECIFIED
     Route: 065
  17. MAGNESIUM CHLORIDE [Suspect]
     Active Substance: MAGNESIUM CHLORIDE
     Indication: Overdose
     Route: 065
  18. MAGNESIUM CHLORIDE ANHYDROUS [Suspect]
     Active Substance: MAGNESIUM CHLORIDE ANHYDROUS
     Indication: Overdose
     Route: 065
  19. METHYLENE BLUE [Suspect]
     Active Substance: METHYLENE BLUE
     Indication: Overdose
     Dosage: 80 MILLIGRAM, DOSAGE FORM: NOT SPECIFIED
     Route: 065
  20. PHENYLALANINE [Suspect]
     Active Substance: PHENYLALANINE
     Indication: Overdose
     Route: 065
  21. PROLINE [Suspect]
     Active Substance: PROLINE
     Indication: Overdose
     Route: 065
  22. THREONINE [Suspect]
     Active Substance: THREONINE
     Indication: Overdose
     Route: 065
  23. VALINE [Suspect]
     Active Substance: VALINE
     Indication: Overdose
     Route: 065
  24. VASOPRESSIN [Suspect]
     Active Substance: VASOPRESSIN
     Indication: Overdose
     Route: 065
  25. VERAPAMIL [Suspect]
     Active Substance: VERAPAMIL HYDROCHLORIDE
     Indication: Overdose
     Dosage: 19.2 GRAM
     Route: 065
  26. VERAPAMIL HYDROCHLORIDE [Suspect]
     Active Substance: VERAPAMIL HYDROCHLORIDE
     Indication: Overdose
     Dosage: 19.2 GRAM
     Route: 065
  27. VERAPAMIL HYDROCHLORIDE [Suspect]
     Active Substance: VERAPAMIL HYDROCHLORIDE
     Indication: Product used for unknown indication
  28. XYLOCAINE WITH EPINEPHRINE [Suspect]
     Active Substance: EPINEPHRINE BITARTRATE\LIDOCAINE HYDROCHLORIDE
     Indication: Overdose
     Dosage: DOSAGE FORM: NOT SPECIFIED
     Route: 065
  29. XYLOCAINE WITH EPINEPHRINE [Suspect]
     Active Substance: EPINEPHRINE BITARTRATE\LIDOCAINE HYDROCHLORIDE
     Dosage: DOSAGE FORM: NOT SPECIFIED
     Route: 065
  30. GLYCINE [Suspect]
     Active Substance: GLYCINE
     Indication: Overdose
     Dosage: DOSAGE FORM: NOT SPECIFIED
     Route: 065

REACTIONS (15)
  - Coma scale abnormal [Recovered/Resolved]
  - Compartment syndrome [Recovered/Resolved]
  - Condition aggravated [Recovered/Resolved]
  - Ileus [Recovered/Resolved]
  - Overdose [Recovered/Resolved]
  - Pulse absent [Recovered/Resolved]
  - Rhabdomyolysis [Recovered/Resolved]
  - Vasoplegia syndrome [Recovered/Resolved]
  - Cardiogenic shock [Recovered/Resolved]
  - Off label use [Recovered/Resolved]
  - Lactic acidosis [Recovered/Resolved]
  - Hyperkalaemia [Recovered/Resolved]
  - Bradycardia [Recovered/Resolved]
  - Cardiac arrest [Recovered/Resolved]
  - Hypotension [Recovered/Resolved]
